FAERS Safety Report 6844466-6 (Version None)
Quarter: 2010Q2

REPORT INFORMATION
  Report Type: 
  Country: None (occurrence: None)
  Receive Date: 20100629
  Receipt Date: 20100416
  Transmission Date: 20101027
  Serious: No
  Sender: FDA-Public Use
  Company Number: US-WYE-H14670210

PATIENT
  Age: 51 Year
  Sex: Female
  Weight: 83.99 kg

DRUGS (5)
  1. PRISTIQ [Suspect]
     Indication: DEPRESSION
     Dosage: 50 MG 1X PER 1 DAY
     Dates: start: 20100414
  2. XANAX [Concomitant]
  3. SOMA (CAARISOPRODOL) [Concomitant]
  4. AMBIEN [Concomitant]
  5. CODEINE SUL TAB [Concomitant]

REACTIONS (3)
  - CONSTIPATION [None]
  - DRY MOUTH [None]
  - HEADACHE [None]
